FAERS Safety Report 9307657 (Version 2)
Quarter: 2013Q3

REPORT INFORMATION
  Report Type: Spontaneous
  Country: US (occurrence: US)
  Receive Date: 20130524
  Receipt Date: 20130828
  Transmission Date: 20140515
  Serious: No
  Sender: FDA-Public Use
  Company Number: US-PFIZER INC-2013156072

PATIENT
  Age: 68 Year
  Sex: Female
  Weight: 99.77 kg

DRUGS (2)
  1. CELEBREX [Suspect]
     Indication: POLYARTHRITIS
     Dosage: 200 MG, 2X/DAY
     Route: 048
     Dates: end: 201305
  2. CYMBALTA [Suspect]
     Indication: POLYARTHRITIS
     Dosage: UNK
     Dates: start: 201305

REACTIONS (3)
  - Blood creatinine increased [Unknown]
  - Malaise [Unknown]
  - Drug effect incomplete [Unknown]
